FAERS Safety Report 11271949 (Version 1)
Quarter: 2015Q3

REPORT INFORMATION
  Report Type: Report from Study
  Country: JP (occurrence: None)
  Receive Date: 20150713
  Receipt Date: 20150713
  Transmission Date: 20151125
  Serious: Yes (Death, Hospitalization, Other)
  Sender: FDA-Public Use
  Company Number: DEP_03075_2015

PATIENT
  Age: 82 Year
  Sex: Male
  Weight: 45 kg

DRUGS (12)
  1. LYRICA [Concomitant]
     Active Substance: PREGABALIN
  2. TAPENTA (TAPENTADOL) [Suspect]
     Active Substance: TAPENTADOL HYDROCHLORIDE
     Indication: CANCER PAIN
     Route: 048
     Dates: start: 20150310
  3. NEXIUM [Concomitant]
     Active Substance: ESOMEPRAZOLE MAGNESIUM
  4. MYSLEE [Concomitant]
     Active Substance: ZOLPIDEM TARTRATE
  5. RENIVACE [Concomitant]
     Active Substance: ENALAPRIL
  6. OXYNORM [Concomitant]
     Active Substance: OXYCODONE HYDROCHLORIDE
  7. HEAVY MAGNESIUM OXIDE [Concomitant]
  8. AMPICILLIN SODIUM. [Concomitant]
     Active Substance: AMPICILLIN SODIUM
  9. TRAMADOL HYDROCHLORIDE/PARACETAMOL [Suspect]
     Active Substance: ACETAMINOPHEN\TRAMADOL HYDROCHLORIDE
     Indication: CANCER PAIN
     Dosage: DF
  10. ZYPREXA [Concomitant]
     Active Substance: OLANZAPINE
  11. AMLODIPINE BESILATE [Concomitant]
     Active Substance: AMLODIPINE BESYLATE
  12. WYSTAL [Concomitant]
     Active Substance: CEFOPERAZONE SODIUM\SULBACTAM SODIUM

REACTIONS (5)
  - Jaundice cholestatic [None]
  - Cholangitis [None]
  - Insomnia [None]
  - Condition aggravated [None]
  - Lung neoplasm malignant [None]

NARRATIVE: CASE EVENT DATE: 20150310
